FAERS Safety Report 10241312 (Version 4)
Quarter: 2015Q1

REPORT INFORMATION
  Report Type: Spontaneous
  Country: US (occurrence: US)
  Receive Date: 20140617
  Receipt Date: 20150218
  Transmission Date: 20150720
  Serious: Yes (Disabling)
  Sender: FDA-Public Use
  Company Number: US-009507513-1406USA007420

PATIENT
  Sex: Male
  Weight: 70.3 kg

DRUGS (1)
  1. PROPECIA [Suspect]
     Active Substance: FINASTERIDE
     Indication: ALOPECIA
     Dosage: 1 MG, QD
     Route: 048
     Dates: start: 200809, end: 200810

REACTIONS (26)
  - Ejaculation disorder [Not Recovered/Not Resolved]
  - Insomnia [Unknown]
  - Penile size reduced [Unknown]
  - Palpitations [Unknown]
  - Cognitive disorder [Not Recovered/Not Resolved]
  - Sexual dysfunction [Not Recovered/Not Resolved]
  - Erectile dysfunction [Not Recovered/Not Resolved]
  - Prostatomegaly [Unknown]
  - Malaise [Unknown]
  - Libido decreased [Not Recovered/Not Resolved]
  - Back pain [Not Recovered/Not Resolved]
  - Asthenia [Unknown]
  - Disturbance in attention [Unknown]
  - Malaise [Unknown]
  - Back disorder [Not Recovered/Not Resolved]
  - Depression [Not Recovered/Not Resolved]
  - Psychogenic erectile dysfunction [Unknown]
  - Cerumen impaction [Unknown]
  - Nervous system disorder [Not Recovered/Not Resolved]
  - Anxiety [Not Recovered/Not Resolved]
  - Intervertebral disc degeneration [Unknown]
  - Nasal congestion [Unknown]
  - Ear pain [Recovered/Resolved]
  - Ejaculation failure [Not Recovered/Not Resolved]
  - Varicocele [Unknown]
  - Stress at work [Unknown]

NARRATIVE: CASE EVENT DATE: 200810
